FAERS Safety Report 20974636 (Version 1)
Quarter: 2022Q2

REPORT INFORMATION
  Report Type: Spontaneous
  Country: US (occurrence: None)
  Receive Date: 20220616
  Receipt Date: 20220616
  Transmission Date: 20220721
  Serious: Yes (Death)
  Sender: FDA-Public Use
  Company Number: None

PATIENT
  Age: 85 Year
  Sex: Female

DRUGS (1)
  1. POMALYST [Suspect]
     Active Substance: POMALIDOMIDE
     Indication: Plasma cell myeloma
     Dosage: FREQUENCY : DAILY;?
     Route: 048
     Dates: start: 20220513, end: 20220520

REACTIONS (9)
  - Hypercalcaemia [None]
  - Mental status changes [None]
  - Atrial fibrillation [None]
  - Respiratory failure [None]
  - Staphylococcal infection [None]
  - Staphylococcal bacteraemia [None]
  - Pneumonia staphylococcal [None]
  - Septic shock [None]
  - Oesophageal stenosis [None]

NARRATIVE: CASE EVENT DATE: 20220603
